FAERS Safety Report 11015515 (Version 2)
Quarter: 2015Q2

REPORT INFORMATION
  Report Type: Spontaneous
  Country: US (occurrence: US)
  Receive Date: 20150412
  Receipt Date: 20150525
  Transmission Date: 20150821
  Serious: No
  Sender: FDA-Public Use
  Company Number: US-JNJFOC-20140501097

PATIENT
  Age: 50 Year
  Sex: Female
  Weight: 114.76 kg

DRUGS (7)
  1. OMEPRAZOLE. [Concomitant]
     Active Substance: OMEPRAZOLE
     Indication: GASTROOESOPHAGEAL REFLUX DISEASE
     Route: 048
     Dates: start: 201404
  2. LEVOTHYROXINE [Concomitant]
     Active Substance: LEVOTHYROXINE
     Indication: THYROID DISORDER
     Route: 048
     Dates: start: 2013
  3. ZOLOFT [Concomitant]
     Active Substance: SERTRALINE HYDROCHLORIDE
     Indication: ANXIETY
     Route: 048
     Dates: start: 2013
  4. PREDNISONE. [Concomitant]
     Active Substance: PREDNISONE
     Indication: INFLAMMATION
     Route: 048
     Dates: start: 201404
  5. SIMPONI [Suspect]
     Active Substance: GOLIMUMAB
     Indication: RHEUMATOID ARTHRITIS
     Route: 058
     Dates: start: 201403
  6. METHOTREXATE [Concomitant]
     Active Substance: METHOTREXATE
     Indication: RHEUMATOID ARTHRITIS
     Route: 048
  7. MELOXICAM. [Concomitant]
     Active Substance: MELOXICAM
     Indication: PAIN
     Route: 048

REACTIONS (3)
  - Drug dose omission [Unknown]
  - Anxiety [Not Recovered/Not Resolved]
  - Device malfunction [Unknown]

NARRATIVE: CASE EVENT DATE: 20140501
